FAERS Safety Report 24525211 (Version 1)
Quarter: 2024Q4

REPORT INFORMATION
  Report Type: Spontaneous
  Country: CN (occurrence: CN)
  Receive Date: 20241019
  Receipt Date: 20241019
  Transmission Date: 20250115
  Serious: Yes (Life-Threatening)
  Sender: ABBVIE
  Company Number: CN-PFIZER INC-PV202400134637

PATIENT
  Age: 81 Year
  Sex: Female

DRUGS (3)
  1. AVIBACTAM SODIUM\CEFTAZIDIME [Suspect]
     Active Substance: AVIBACTAM SODIUM\CEFTAZIDIME
     Indication: Pneumonia
     Dosage: 1.250 G, 1X/DAY
     Route: 041
     Dates: start: 20240823, end: 20240825
  2. OMADACYCLINE TOSYLATE [Suspect]
     Active Substance: OMADACYCLINE TOSYLATE
     Indication: Pneumonia
     Dosage: 0.100 G, 1X/DAY
     Route: 041
     Dates: start: 20240816, end: 20240823
  3. MEROPENEM [Suspect]
     Active Substance: MEROPENEM
     Indication: Pneumonia
     Dosage: 0.500 G, 1X/DAY
     Route: 041
     Dates: start: 20240823, end: 20240828

REACTIONS (2)
  - Drug eruption [Not Recovered/Not Resolved]
  - Myelosuppression [Not Recovered/Not Resolved]

NARRATIVE: CASE EVENT DATE: 20240825
